FAERS Safety Report 9320397 (Version 3)
Quarter: 2013Q4

REPORT INFORMATION
  Report Type: Spontaneous
  Country: US (occurrence: US)
  Receive Date: 20130530
  Receipt Date: 20131115
  Transmission Date: 20140711
  Serious: Yes (Hospitalization)
  Sender: FDA-Public Use
  Company Number: US-B.I. PHARMACEUTICALS,INC./RIDGEFIELD-2013-BI-14544BP

PATIENT
  Age: 59 Year
  Sex: Male
  Weight: 106.59 kg

DRUGS (15)
  1. PRADAXA [Suspect]
     Indication: ANTICOAGULANT THERAPY
     Dosage: 300 MG
     Route: 048
     Dates: start: 20110608, end: 20120413
  2. PRADAXA [Suspect]
     Indication: ATRIAL FIBRILLATION
  3. K-DUR [Concomitant]
     Dates: start: 2011
  4. LASIX [Concomitant]
     Dates: start: 2010
  5. MULTIVITAMIN [Concomitant]
     Dates: start: 2010
  6. SINGULAIR [Concomitant]
     Dates: start: 2011
  7. SPIRIVA [Concomitant]
     Dates: start: 2011
  8. VERAPAMIL [Concomitant]
     Dates: start: 2011
  9. ADVAIR [Concomitant]
     Dates: start: 2010, end: 2012
  10. METOPROLOL [Concomitant]
  11. MIRTAZAPINE [Concomitant]
  12. CIPROFLOXACIN [Concomitant]
     Dosage: 1500 MG
     Route: 048
  13. FERROUS SULFATE [Concomitant]
     Dosage: 130 MG
     Route: 048
  14. REMERON [Concomitant]
     Dosage: 15 MG
     Route: 048
  15. ZAROXOLYN [Concomitant]
     Dosage: 2.5 MG
     Route: 048

REACTIONS (2)
  - Gastrointestinal haemorrhage [Unknown]
  - Anaemia [Unknown]
